FAERS Safety Report 7913217-6 (Version None)
Quarter: 2011Q4

REPORT INFORMATION
  Report Type: 
  Country: None (occurrence: None)
  Receive Date: 20111114
  Receipt Date: 20111031
  Transmission Date: 20120403
  Serious: Yes (Other)
  Sender: FDA-Public Use
  Company Number: PHHY2011JP29828

PATIENT
  Age: 60 Year
  Sex: Male

DRUGS (4)
  1. ALLOPURINOL [Interacting]
     Dosage: 1 DF, UNK
     Route: 048
     Dates: start: 20041017
  2. DIOVAN HCT [Interacting]
     Indication: HYPERTENSION
     Dosage: 1 DF, UNK
     Route: 048
     Dates: start: 20101119
  3. ALOCHINON [Interacting]
     Dosage: UNK
     Route: 048
     Dates: start: 20041228
  4. RASILEZ [Suspect]
     Dosage: UNK
     Route: 048
     Dates: start: 20110314, end: 20110404

REACTIONS (4)
  - SKIN SWELLING [None]
  - DRUG INTERACTION [None]
  - ERYTHEMA [None]
  - PHOTOSENSITIVITY REACTION [None]
